APPROVED DRUG PRODUCT: COXANTO
Active Ingredient: OXAPROZIN
Strength: 300MG
Dosage Form/Route: CAPSULE;ORAL
Application: N217927 | Product #001
Applicant: SOLUBIOMIX LLC
Approved: Oct 20, 2023 | RLD: Yes | RS: Yes | Type: RX